FAERS Safety Report 12718352 (Version 2)
Quarter: 2016Q3

REPORT INFORMATION
  Report Type: Spontaneous
  Country: US (occurrence: US)
  Receive Date: 20160906
  Receipt Date: 20160920
  Transmission Date: 20161109
  Serious: No
  Sender: FDA-Public Use
  Company Number: US-009507513-1608USA010962

PATIENT
  Sex: Male

DRUGS (1)
  1. ZETIA [Suspect]
     Active Substance: EZETIMIBE
     Dosage: 10 MG/ ONCE DAILY
     Route: 048

REACTIONS (4)
  - No adverse event [Unknown]
  - Product use issue [Unknown]
  - Product quality issue [Unknown]
  - Product supply issue [Unknown]
